FAERS Safety Report 9853478 (Version 7)
Quarter: 2014Q4

REPORT INFORMATION
  Report Type: Report from Study
  Country: IE (occurrence: IE)
  Receive Date: 20140129
  Receipt Date: 20141027
  Transmission Date: 20150529
  Serious: Yes (Other)
  Sender: FDA-Public Use
  Company Number: IE-GLAXOSMITHKLINE-B0797721A

PATIENT
  Age: 63 Year
  Sex: Male
  Weight: 101.5 kg

DRUGS (8)
  1. ATENOLOL. [Concomitant]
     Active Substance: ATENOLOL
  2. INDAPAMIDE. [Concomitant]
     Active Substance: INDAPAMIDE
  3. FENOFIBRATE. [Concomitant]
     Active Substance: FENOFIBRATE
  4. LERCANIDIPINE [Concomitant]
     Active Substance: LERCANIDIPINE
  5. ROSUVASTATIN [Concomitant]
     Active Substance: ROSUVASTATIN
  6. METFORMIN + SITAGLIPTIN [Concomitant]
  7. LOSARTAN [Concomitant]
     Active Substance: LOSARTAN
  8. DABRAFENIB [Suspect]
     Active Substance: DABRAFENIB
     Indication: METASTATIC MALIGNANT MELANOMA
     Dosage: 150 MG, BID
     Route: 065
     Dates: start: 20120202

REACTIONS (8)
  - Melanocytic naevus [Recovered/Resolved]
  - Skin hypertrophy [Recovered/Resolved]
  - Electrocardiogram QT prolonged [Not Recovered/Not Resolved]
  - Acrochordon [Recovered/Resolved]
  - Lower respiratory tract infection [Recovered/Resolved]
  - Hair texture abnormal [Not Recovered/Not Resolved]
  - Pain in extremity [Recovered/Resolved]
  - Chest pain [Recovered/Resolved]

NARRATIVE: CASE EVENT DATE: 20120302
